FAERS Safety Report 14298512 (Version 6)
Quarter: 2018Q2

REPORT INFORMATION
  Report Type: Report from Study
  Country: US (occurrence: US)
  Receive Date: 20171218
  Receipt Date: 20180504
  Transmission Date: 20180711
  Serious: Yes (Hospitalization, Other)
  Sender: FDA-Public Use
  Company Number: US-ACTELION-A-US2017-160866

PATIENT
  Age: 49 Year
  Sex: Female

DRUGS (9)
  1. SILDENAFIL. [Concomitant]
     Active Substance: SILDENAFIL
     Dosage: 20 MG, TID
  2. PENTOXYFYLLINE [Concomitant]
     Dosage: 400 MG, TID
  3. TRACLEER [Suspect]
     Active Substance: BOSENTAN
     Indication: PULMONARY HYPERTENSION
     Dosage: 125 MG, BID
     Route: 048
     Dates: start: 20170811, end: 20180320
  4. MORPHINE [Concomitant]
     Active Substance: MORPHINE
  5. PLAQUENIL [Concomitant]
     Active Substance: HYDROXYCHLOROQUINE SULFATE
     Dosage: 200 MG, UNK
  6. PREDNISONE. [Concomitant]
     Active Substance: PREDNISONE
     Dosage: 10 MG, UNK
  7. PRADAXA [Concomitant]
     Active Substance: DABIGATRAN ETEXILATE MESYLATE
     Dosage: 150 MG, BID
  8. AMLODIPINE [Concomitant]
     Active Substance: AMLODIPINE BESYLATE
     Dosage: 10 MG, UNK
  9. TRACLEER [Suspect]
     Active Substance: BOSENTAN
     Dosage: 62.5 MG, BID
     Route: 048
     Dates: start: 20170813

REACTIONS (33)
  - Haemoglobin decreased [Not Recovered/Not Resolved]
  - Pain [Unknown]
  - Chest pain [Recovered/Resolved]
  - Red blood cell sedimentation rate increased [Not Recovered/Not Resolved]
  - Pain in extremity [Unknown]
  - Infection [Unknown]
  - Fibrin D dimer increased [Unknown]
  - Systemic inflammatory response syndrome [Unknown]
  - Pneumonia [Unknown]
  - Nausea [Unknown]
  - Haemolytic anaemia [Not Recovered/Not Resolved]
  - Gangrene [Unknown]
  - Cholecystitis acute [Recovered/Resolved]
  - Haematocrit decreased [Not Recovered/Not Resolved]
  - Troponin increased [Recovered/Resolved]
  - Brain natriuretic peptide increased [Unknown]
  - Finger amputation [Unknown]
  - Soft tissue necrosis [Unknown]
  - Transfusion [Unknown]
  - Myocardial ischaemia [Unknown]
  - C-reactive protein increased [Recovering/Resolving]
  - Osteomyelitis chronic [Unknown]
  - White blood cell count increased [Unknown]
  - Reticulocyte count increased [Not Recovered/Not Resolved]
  - Red blood cell count decreased [Not Recovered/Not Resolved]
  - Vomiting [Unknown]
  - Pyrexia [Unknown]
  - Tachycardia [Unknown]
  - Wound drainage [Unknown]
  - Chills [Unknown]
  - Erythema [Unknown]
  - Anaemia [Not Recovered/Not Resolved]
  - Therapy non-responder [Unknown]

NARRATIVE: CASE EVENT DATE: 20170920
